FAERS Safety Report 4540538-X (Version None)
Quarter: 2004Q4

REPORT INFORMATION
  Report Type: 
  Country: None (occurrence: None)
  Receive Date: 20041228
  Receipt Date: 20041228
  Transmission Date: 20050328
  Serious: Yes (Other)
  Sender: FDA-Public Use
  Company Number: None

PATIENT
  Age: 52 Year
  Sex: Female
  Weight: 58.9676 kg

DRUGS (1)
  1. LEVAQUIN [Suspect]
     Dosage: 500 MG SINGLE ORAL
     Route: 048

REACTIONS (1)
  - GRAND MAL CONVULSION [None]
